FAERS Safety Report 12865618 (Version 1)
Quarter: 2016Q4

REPORT INFORMATION
  Report Type: Spontaneous
  Country: BR (occurrence: BR)
  Receive Date: 20161020
  Receipt Date: 20161020
  Transmission Date: 20170207
  Serious: Yes (Other)
  Sender: FDA-Public Use
  Company Number: BR-PFIZER INC-2016484104

PATIENT
  Age: 33 Year
  Sex: Male

DRUGS (4)
  1. TIGECYCLINE. [Suspect]
     Active Substance: TIGECYCLINE
     Indication: OPEN FRACTURE
  2. TIGECYCLINE. [Suspect]
     Active Substance: TIGECYCLINE
     Indication: PSEUDOMONAS TEST POSITIVE
     Dosage: 50 MG, 2X/DAY
     Route: 042
     Dates: start: 20160803, end: 20161010
  3. TIGECYCLINE. [Suspect]
     Active Substance: TIGECYCLINE
     Indication: ACINETOBACTER TEST POSITIVE
  4. COLISTIN [Suspect]
     Active Substance: COLISTIN
     Dosage: UNK
     Dates: start: 2016, end: 20160903

REACTIONS (7)
  - Laryngeal oedema [Unknown]
  - Atelectasis [Unknown]
  - Hypersensitivity [Unknown]
  - Lip oedema [Unknown]
  - Nephropathy [Unknown]
  - Pleural effusion [Unknown]
  - Acute kidney injury [Recovered/Resolved]

NARRATIVE: CASE EVENT DATE: 20160806
